FAERS Safety Report 10576826 (Version 2)
Quarter: 2014Q4

REPORT INFORMATION
  Report Type: Report from Study
  Country: DE (occurrence: DE)
  Receive Date: 20141111
  Receipt Date: 20141205
  Transmission Date: 20150529
  Serious: Yes (Life-Threatening)
  Sender: FDA-Public Use
  Company Number: DE-PFIZER INC-2014307507

PATIENT
  Age: 66 Year
  Sex: Female

DRUGS (10)
  1. SIROLIMUS. [Suspect]
     Active Substance: SIROLIMUS
     Dosage: 3 MG, DAILY
     Route: 048
     Dates: start: 20140807, end: 20140811
  2. RITUXIMAB [Suspect]
     Active Substance: RITUXIMAB
     Indication: IMMUNOSUPPRESSION
     Dosage: 785 MG, DAILY (500MG/M^2)
     Route: 042
     Dates: start: 20140805, end: 20140928
  3. SIROLIMUS. [Suspect]
     Active Substance: SIROLIMUS
     Indication: IMMUNOSUPPRESSION
     Dosage: 2 MG, DAILY
     Route: 048
     Dates: start: 20140805, end: 20140806
  4. SIROLIMUS. [Suspect]
     Active Substance: SIROLIMUS
     Dosage: 1 MG, DAILY
     Route: 048
     Dates: start: 20140812, end: 20140812
  5. MYCOPHENOLATE MOFETIL. [Suspect]
     Active Substance: MYCOPHENOLATE MOFETIL
     Dosage: REDUCED LEVEL ADAPTED
     Dates: start: 20140824, end: 20140928
  6. ATG [Suspect]
     Active Substance: LAPINE T-LYMPHOCYTE IMMUNE GLOBULIN
     Indication: IMMUNOSUPPRESSION
     Dosage: 1040 MG, DAILY
     Route: 042
     Dates: start: 20140802, end: 20140804
  7. FLUDARABINE [Suspect]
     Active Substance: FLUDARABINE PHOSPHATE
     Indication: IMMUNOSUPPRESSION
     Dosage: 47 MG, DAILY
     Route: 042
     Dates: start: 20140731, end: 20140804
  8. SIROLIMUS. [Suspect]
     Active Substance: SIROLIMUS
     Dosage: FURTHER LEVEL ADAPTED
     Dates: end: 20141001
  9. ATG [Suspect]
     Active Substance: LAPINE T-LYMPHOCYTE IMMUNE GLOBULIN
     Dosage: UNK
     Dates: end: 20140928
  10. MYCOPHENOLATE MOFETIL. [Suspect]
     Active Substance: MYCOPHENOLATE MOFETIL
     Indication: IMMUNOSUPPRESSION
     Dosage: 750 MG, 3X/DAY
     Route: 048
     Dates: start: 20140806, end: 201408

REACTIONS (1)
  - Stupor [Recovered/Resolved]

NARRATIVE: CASE EVENT DATE: 20141014
